FAERS Safety Report 9117386 (Version 1)
Quarter: 2013Q1

REPORT INFORMATION
  Report Type: Spontaneous
  Country: US (occurrence: US)
  Receive Date: 20130129
  Receipt Date: 20130129
  Transmission Date: 20140127
  Serious: No
  Sender: FDA-Public Use
  Company Number: US-ABBOTT-12P-163-0942800-00

PATIENT
  Age: 69 None
  Sex: Female
  Weight: 54.48 kg

DRUGS (1)
  1. HUMIRA 40 MG/ 0.8 ML PRE-FILLED SYRINGE [Suspect]
     Indication: RHEUMATOID ARTHRITIS
     Route: 058
     Dates: start: 2003

REACTIONS (3)
  - Skin discolouration [Recovered/Resolved]
  - Rash macular [Recovering/Resolving]
  - Drug dose omission [Unknown]
